FAERS Safety Report 8229539-8 (Version None)
Quarter: 2012Q1

REPORT INFORMATION
  Report Type: 
  Country: None (occurrence: None)
  Receive Date: 20120322
  Receipt Date: 20120312
  Transmission Date: 20120608
  Serious: Yes (Other)
  Sender: FDA-Public Use
  Company Number: GB-B.I. PHARMACEUTICALS,INC./RIDGEFIELD-2012-UK-00367UK

PATIENT
  Age: 70 Year

DRUGS (4)
  1. VIRAMUNE [Suspect]
     Indication: HIV INFECTION
     Dosage: 200 MG
  2. VIRAMUNE [Suspect]
     Dosage: 400 MG
     Dates: start: 20120101
  3. PAROXETINE HCL [Concomitant]
     Indication: MENTAL DISABILITY
  4. TRUVADA [Concomitant]
     Indication: HIV INFECTION
     Dates: start: 20120101

REACTIONS (8)
  - TREMOR [None]
  - HALLUCINATION [None]
  - DRUG WITHDRAWAL SYNDROME [None]
  - SUICIDAL IDEATION [None]
  - ANXIETY [None]
  - DRUG INTERACTION [None]
  - SEROTONIN SYNDROME [None]
  - NIGHTMARE [None]
